FAERS Safety Report 12974147 (Version 3)
Quarter: 2016Q4

REPORT INFORMATION
  Report Type: Spontaneous
  Country: DE (occurrence: DE)
  Receive Date: 20161125
  Receipt Date: 20161220
  Transmission Date: 20170207
  Serious: Yes (Death)
  Sender: FDA-Public Use
  Company Number: DE-ROCHE-1858962

PATIENT
  Age: 80 Year
  Sex: Male
  Weight: 60 kg

DRUGS (7)
  1. NEPRESSOL [Concomitant]
     Dosage: DAILY DOSE: 1ML/HR
     Route: 042
     Dates: start: 20161119, end: 20161120
  2. ACTILYSE [Suspect]
     Active Substance: ALTEPLASE
     Indication: HEMIPLEGIA
  3. BELOC (GERMANY) [Concomitant]
     Indication: PRODUCT USED FOR UNKNOWN INDICATION
     Dosage: DAILY DOSE OF 5MG/100ML: 67ML/HR
     Route: 042
     Dates: start: 20161119, end: 20161120
  4. ACTILYSE [Suspect]
     Active Substance: ALTEPLASE
     Indication: APHASIA
     Route: 042
     Dates: start: 20161119, end: 20161120
  5. ACTILYSE [Suspect]
     Active Substance: ALTEPLASE
     Indication: HEMIPARESIS
  6. ACTILYSE [Suspect]
     Active Substance: ALTEPLASE
     Indication: CEREBROVASCULAR ACCIDENT
  7. EBRANTIL [Concomitant]
     Active Substance: URAPIDIL
     Indication: HYPERTENSION
     Dosage: DAILY DOSE: 6-9 ML/HR
     Route: 042
     Dates: start: 20161119, end: 20161120

REACTIONS (1)
  - Cerebral haemorrhage [Fatal]

NARRATIVE: CASE EVENT DATE: 20161119
